FAERS Safety Report 10190831 (Version 1)
Quarter: 2014Q2

REPORT INFORMATION
  Report Type: Spontaneous
  Country: US (occurrence: None)
  Receive Date: 20140521
  Receipt Date: 20140521
  Transmission Date: 20141212
  Serious: Yes (Disabling)
  Sender: FDA-Public Use
  Company Number: None

PATIENT
  Age: 54 Year
  Sex: Female
  Weight: 113.4 kg

DRUGS (1)
  1. TECFIDERA 240MG BIOGEN [Suspect]
     Indication: MULTIPLE SCLEROSIS
     Dosage: ONE TAB, TWICE DAILY, TAKEN BY MOUTH?
     Route: 048
     Dates: start: 20140331, end: 20140515

REACTIONS (8)
  - Palpitations [None]
  - Faecal incontinence [None]
  - Hypoaesthesia [None]
  - Paraesthesia [None]
  - Feeling hot [None]
  - Dizziness [None]
  - Disorientation [None]
  - Movement disorder [None]
